FAERS Safety Report 5428939-9 (Version None)
Quarter: 2007Q3

REPORT INFORMATION
  Report Type: 
  Country: None (occurrence: None)
  Receive Date: 20070827
  Receipt Date: 20070821
  Transmission Date: 20080115
  Serious: Yes (Hospitalization, Other)
  Sender: FDA-Public Use
  Company Number: 2006-04-0702

PATIENT
  Age: 38 Year
  Sex: Female
  Weight: 175.542 kg

DRUGS (10)
  1. PEG-INTRON [Suspect]
     Indication: HEPATITIS C
     Dosage: 150 MCG;/WK; SC
     Route: 058
     Dates: start: 20050509, end: 20060403
  2. RIBAVIRIN [Suspect]
     Indication: HEPATITIS C
     Dosage: 600 MG; BID; PO
     Route: 048
     Dates: start: 20050509, end: 20060403
  3. CARDIZEM [Concomitant]
  4. MAXALT [Concomitant]
  5. VICODIN [Concomitant]
  6. LITHIUM CARBONATE [Concomitant]
  7. PAROXETINE HYDROCHLORIDE [Concomitant]
  8. MORPHINE [Concomitant]
  9. AZMACORT [Concomitant]
  10. PENICILLIN G [Concomitant]

REACTIONS (30)
  - ABDOMINAL PAIN [None]
  - ABDOMINAL PAIN UPPER [None]
  - AGITATION [None]
  - ALOPECIA [None]
  - ARTHRALGIA [None]
  - ASTHMA [None]
  - BLOOD THYROID STIMULATING HORMONE INCREASED [None]
  - DEEP VEIN THROMBOSIS [None]
  - DEHYDRATION [None]
  - DIARRHOEA [None]
  - DRUG INEFFECTIVE [None]
  - FLUID INTAKE REDUCED [None]
  - HYPERHIDROSIS [None]
  - MIGRAINE [None]
  - MUSCLE SPASMS [None]
  - MYALGIA [None]
  - NAUSEA [None]
  - PAINFUL DEFAECATION [None]
  - PULMONARY EMBOLISM [None]
  - PULMONARY THROMBOSIS [None]
  - SELF-INJURIOUS IDEATION [None]
  - SUICIDAL IDEATION [None]
  - THROAT IRRITATION [None]
  - THYROID DISORDER [None]
  - TREATMENT NONCOMPLIANCE [None]
  - VISUAL ACUITY REDUCED [None]
  - VOMITING [None]
  - WEIGHT DECREASED [None]
  - WEIGHT INCREASED [None]
  - WHITE BLOOD CELL COUNT DECREASED [None]
